FAERS Safety Report 12093965 (Version 1)
Quarter: 2016Q1

REPORT INFORMATION
  Report Type: Spontaneous
  Country: FR (occurrence: FR)
  Receive Date: 20160219
  Receipt Date: 20160219
  Transmission Date: 20160526
  Serious: Yes (Death, Life-Threatening, Other)
  Sender: FDA-Public Use
  Company Number: FR-VIIV HEALTHCARE LIMITED-FR2015GSK026499

PATIENT
  Age: 55 Year
  Sex: Male

DRUGS (17)
  1. PROCORALAN [Concomitant]
     Active Substance: IVABRADINE
  2. INSPRA [Concomitant]
     Active Substance: EPLERENONE
  3. LANTUS [Concomitant]
     Active Substance: INSULIN GLARGINE
  4. LASIX [Concomitant]
     Active Substance: FUROSEMIDE
  5. TIVICAY [Suspect]
     Active Substance: DOLUTEGRAVIR SODIUM
     Indication: HIV INFECTION
     Dosage: 1 UNK, BID
     Dates: start: 20141216, end: 20150107
  6. TRUVADA [Suspect]
     Active Substance: EMTRICITABINE\TENOFOVIR DISOPROXIL FUMARATE
     Indication: HIV INFECTION
     Dosage: 1 UNK, QD
     Dates: start: 20141216, end: 20150107
  7. NOVORAPID [Concomitant]
     Active Substance: INSULIN ASPART
  8. TRILEPTAL [Concomitant]
     Active Substance: OXCARBAZEPINE
  9. VALIUM [Concomitant]
     Active Substance: DIAZEPAM
  10. DIFFU K [Concomitant]
     Active Substance: POTASSIUM CHLORIDE
  11. WELLVONE [Concomitant]
     Active Substance: ATOVAQUONE
  12. FUNGIZONE [Concomitant]
     Active Substance: AMPHOTERICIN B
  13. CORTANCYL [Concomitant]
     Active Substance: PREDNISONE
  14. BEVITINE [Concomitant]
     Active Substance: THIAMINE
  15. KARDEGIC [Concomitant]
     Active Substance: ASPIRIN LYSINE
  16. BRILIQUE [Concomitant]
     Active Substance: TICAGRELOR
  17. FLUCONAZOLE. [Concomitant]
     Active Substance: FLUCONAZOLE

REACTIONS (3)
  - Dermatitis exfoliative [Fatal]
  - Septic shock [Fatal]
  - Drug reaction with eosinophilia and systemic symptoms [Fatal]

NARRATIVE: CASE EVENT DATE: 2015
